FAERS Safety Report 5278422-9 (Version None)
Quarter: 2007Q1

REPORT INFORMATION
  Report Type: 
  Country: None (occurrence: None)
  Receive Date: 20061213
  Receipt Date: 20050629
  Transmission Date: 20070707
  Serious: No
  Sender: FDA-Public Use
  Company Number: 2005UW09829

PATIENT
  Age: 44 Year
  Sex: Male

DRUGS (11)
  1. SEROQUEL [Suspect]
     Dosage: 800 MG DAILY PO
     Route: 048
     Dates: start: 20040401
  2. TRILAFON [Concomitant]
  3. ABILIFY [Concomitant]
  4. ZYPREXA [Concomitant]
  5. MORPHINE [Concomitant]
  6. PROZAC [Concomitant]
  7. BUSPAR [Concomitant]
  8. PROTONIX [Concomitant]
  9. PANCREASE [Concomitant]
  10. COLACE [Concomitant]
  11. COGENTIN [Concomitant]

REACTIONS (1)
  - TARDIVE DYSKINESIA [None]
